FAERS Safety Report 7207417-0 (Version None)
Quarter: 2011Q1

REPORT INFORMATION
  Report Type: 
  Country: None (occurrence: None)
  Receive Date: 20110103
  Receipt Date: 20101218
  Transmission Date: 20110831
  Serious: Yes (Hospitalization, Other)
  Sender: FDA-Public Use
  Company Number: PHHY2010NL86290

PATIENT
  Age: 81 Year
  Sex: Male

DRUGS (4)
  1. LISINOPRIL [Suspect]
     Dosage: 20MG/DAY
  2. LISINOPRIL [Suspect]
     Dosage: 40 MG/DAY
  3. DICLOFENAC [Suspect]
     Dosage: 50MG, TID
  4. CHLORTHALIDONE [Suspect]
     Dosage: 12.5MG/DAY

REACTIONS (11)
  - ABDOMINAL PAIN [None]
  - BLOOD POTASSIUM INCREASED [None]
  - OEDEMA PERIPHERAL [None]
  - DEHYDRATION [None]
  - GASTROENTERITIS [None]
  - HYPOTENSION [None]
  - BLOOD CREATININE INCREASED [None]
  - DIARRHOEA [None]
  - RENAL FAILURE ACUTE [None]
  - HEART RATE DECREASED [None]
  - BLOOD UREA INCREASED [None]
